FAERS Safety Report 9582706 (Version 1)
Quarter: 2013Q4

REPORT INFORMATION
  Report Type: Spontaneous
  Country: US (occurrence: US)
  Receive Date: 20131002
  Receipt Date: 20131002
  Transmission Date: 20140711
  Serious: No
  Sender: FDA-Public Use
  Company Number: US-AMGEN-USASP2013041863

PATIENT
  Age: 51 Year
  Sex: Female

DRUGS (6)
  1. ENBREL [Suspect]
     Indication: PRODUCT USED FOR UNKNOWN INDICATION
     Dosage: 50 MG, QWK
     Route: 058
  2. FLEXERIL                           /00428402/ [Concomitant]
     Dosage: 10 MG, UNK
  3. FUROSEMIDE [Concomitant]
     Dosage: 20 MG, UNK
  4. NASONEX [Concomitant]
     Dosage: 50 MUG/AC, UNK
  5. PULMICORT [Concomitant]
     Dosage: 200 MUG, UNK
     Route: 045
  6. METHADONE [Concomitant]
     Dosage: 40 MG, UNK

REACTIONS (1)
  - Nasopharyngitis [Unknown]
